FAERS Safety Report 5685329-1 (Version None)
Quarter: 2008Q1

REPORT INFORMATION
  Report Type: 
  Country: None (occurrence: None)
  Receive Date: 20080328
  Receipt Date: 20080317
  Transmission Date: 20080703
  Serious: Yes (Death)
  Sender: FDA-Public Use
  Company Number: GB-PFIZER INC-2008024674

PATIENT
  Age: 77 Year
  Sex: Female
  Weight: 100 kg

DRUGS (7)
  1. GENOTROPIN [Suspect]
     Indication: HYPOPITUITARISM
  2. ALLOPURINOL [Concomitant]
  3. DIGOXIN [Concomitant]
  4. LISINOPRIL [Concomitant]
  5. ISOSORBIDE DINITRATE [Concomitant]
  6. WARFARIN SODIUM [Concomitant]
  7. FUROSEMIDE [Concomitant]

REACTIONS (1)
  - PNEUMONIA [None]
